FAERS Safety Report 6324129-6 (Version None)
Quarter: 2009Q3

REPORT INFORMATION
  Report Type: 
  Country: None (occurrence: None)
  Receive Date: 20090824
  Receipt Date: 20090522
  Transmission Date: 20100115
  Serious: No
  Sender: FDA-Public Use
  Company Number: US-ABBOTT-09P-163-0575696-00

PATIENT
  Sex: Male
  Weight: 74.91 kg

DRUGS (3)
  1. NIASPAN [Suspect]
     Indication: ARTERIOSCLEROSIS
     Route: 048
     Dates: start: 20090501, end: 20090501
  2. NIASPAN [Suspect]
     Route: 048
     Dates: start: 20090501, end: 20090501
  3. NIASPAN [Suspect]
     Dosage: AT BEDTIME(EACH WEEK DOSE INCREASED FOR 3 WEEKS BY 500 MGS)
     Route: 048
     Dates: start: 20090501, end: 20090501

REACTIONS (2)
  - PRURITUS [None]
  - RASH [None]
